FAERS Safety Report 7146302-X (Version None)
Quarter: 2010Q4

REPORT INFORMATION
  Report Type: 
  Country: None (occurrence: None)
  Receive Date: 20101208
  Receipt Date: 20101120
  Transmission Date: 20110411
  Serious: No
  Sender: FDA-Public Use
  Company Number: US-B.I. PHARMACEUTICALS,INC./RIDGEFIELD-2010-BP-13125BP

PATIENT
  Sex: Male

DRUGS (5)
  1. MOBIC [Suspect]
     Indication: TENDON RUPTURE
     Dosage: 15 MG
     Route: 048
     Dates: start: 20101012, end: 20101016
  2. DILAUDID [Concomitant]
     Indication: PAIN
  3. SOMA [Concomitant]
     Indication: BACK INJURY
  4. VALIUM [Concomitant]
     Indication: ANXIETY
  5. BC POWDER [Concomitant]
     Indication: ARTHRITIS

REACTIONS (2)
  - CONSTIPATION [None]
  - GASTROINTESTINAL MOTILITY DISORDER [None]
